FAERS Safety Report 19054469 (Version 4)
Quarter: 2024Q1

REPORT INFORMATION
  Report Type: Report from Study
  Country: IT (occurrence: IT)
  Receive Date: 20210325
  Receipt Date: 20240326
  Transmission Date: 20240410
  Serious: Yes (Hospitalization)
  Sender: FDA-Public Use
  Company Number: IT-CELLTRION INC.-2021IT003815

PATIENT

DRUGS (8)
  1. TRASTUZUMAB [Suspect]
     Active Substance: TRASTUZUMAB
     Indication: Breast cancer
     Dosage: NO. OF COURSES 6 LAST DOSE BEFORE SAE WAS 6 MG/KG ON 01/OCT/2020.
     Route: 042
     Dates: start: 20200608, end: 20201009
  2. ATEZOLIZUMAB [Suspect]
     Active Substance: ATEZOLIZUMAB
     Indication: Breast cancer
     Dosage: NUMBER OF COURSES WERE 6 LAST DOSE BEFORE SAE WAS 01/OCT/2020
     Route: 042
     Dates: start: 20200608, end: 20201009
  3. CARBOPLATIN [Suspect]
     Active Substance: CARBOPLATIN
     Indication: Breast cancer
     Dosage: TOTAL DOSE WAS AUC 2. LAST DOSE BEFORE SAE WAS ON 09/OCT/2020 NUMBER OF CYCLES 6
     Route: 042
     Dates: start: 20200608, end: 20201009
  4. PACLITAXEL [Suspect]
     Active Substance: PACLITAXEL
     Indication: Breast cancer
     Dosage: LAST DOSE BEFORE SAE WAS 90 MG/MQ ON 09/OCT/2020 NUMBER OF COURSES 6
     Route: 042
     Dates: start: 20200608
  5. PERTUZUMAB [Suspect]
     Active Substance: PERTUZUMAB
     Indication: Breast cancer
     Dosage: LAST DOSE BEFORE SAE WAS 420 MG ON 01/OCT/2020 NO. OF CYCLES 6
     Route: 042
     Dates: start: 20200608, end: 20201009
  6. METHYLPREDNISOLONE [Concomitant]
     Active Substance: METHYLPREDNISOLONE
     Dosage: 60 MG, EVERY 0.5 DAY
     Dates: start: 20201022
  7. METRONIDAZOLE [Concomitant]
     Active Substance: METRONIDAZOLE
     Dosage: 3 DAYS
     Route: 042
  8. VANCOMYCIN [Concomitant]
     Active Substance: VANCOMYCIN
     Dosage: 500 MG
     Route: 048

REACTIONS (1)
  - Mucosal inflammation [Recovered/Resolved]

NARRATIVE: CASE EVENT DATE: 20201013
